FAERS Safety Report 23404884 (Version 1)
Quarter: 2024Q1

REPORT INFORMATION
  Report Type: Spontaneous
  Country: US (occurrence: US)
  Receive Date: 20240116
  Receipt Date: 20240116
  Transmission Date: 20240410
  Serious: Yes (Other)
  Sender: FDA-Public Use
  Company Number: US-BAYER-2024A002857

PATIENT
  Sex: Female

DRUGS (1)
  1. MIRENA [Suspect]
     Active Substance: LEVONORGESTREL
     Indication: Contraception
     Dosage: 20?G/DAY
     Route: 015
     Dates: start: 20230929

REACTIONS (5)
  - Device breakage [None]
  - Pelvic pain [Unknown]
  - Device dislocation [None]
  - Abdominal pain lower [None]
  - Complication of device removal [None]

NARRATIVE: CASE EVENT DATE: 20230911
